FAERS Safety Report 5386434-X (Version None)
Quarter: 2007Q3

REPORT INFORMATION
  Report Type: 
  Country: None (occurrence: None)
  Receive Date: 20070710
  Receipt Date: 20070628
  Transmission Date: 20080115
  Serious: Yes (Hospitalization)
  Sender: FDA-Public Use
  Company Number: 100#08#2007-02408

PATIENT
  Age: 97 Year
  Sex: Female

DRUGS (12)
  1. CIPROFLOXACIN [Suspect]
     Indication: BRONCHIECTASIS
     Dosage: SEE IMAGE
  2. CIPROFLOXACIN [Suspect]
     Indication: BRONCHOPNEUMONIA
     Dosage: SEE IMAGE
  3. CIPROFLOXACIN [Suspect]
     Indication: CONDITION AGGRAVATED
     Dosage: SEE IMAGE
  4. CIPROFLOXACIN [Suspect]
     Indication: DRUG USE FOR UNKNOWN INDICATION
     Dosage: SEE IMAGE
  5. CIPROFLOXACIN [Suspect]
     Indication: URINARY TRACT INFECTION
     Dosage: SEE IMAGE
  6. CEFTRIAXONE [Concomitant]
  7. ERYTHROMYCIN [Concomitant]
  8. CEFTAZIDIME [Concomitant]
  9. IMIPENEM                     (IMIPENEM) [Concomitant]
  10. AUGMENTIN                        (AUGMENTINE) [Concomitant]
  11. CEFEPIME [Concomitant]
  12. PIPERACILLIN-TAZOBACTAM                            (PIPERACILLIN-TAZOB [Concomitant]

REACTIONS (6)
  - BRONCHIECTASIS [None]
  - BRONCHOPNEUMONIA [None]
  - IMPAIRED HEALING [None]
  - INFECTION MASKED [None]
  - LUNG INFECTION [None]
  - TUBERCULOSIS [None]
